FAERS Safety Report 14964252 (Version 1)
Quarter: 2018Q2

REPORT INFORMATION
  Report Type: Spontaneous
  Country: US (occurrence: US)
  Receive Date: 20180510
  Receipt Date: 20180510
  Transmission Date: 20180711
  Serious: Yes (Hospitalization)
  Sender: FDA-Public Use
  Company Number: None

PATIENT
  Sex: Male

DRUGS (3)
  1. SUTENT [Suspect]
     Active Substance: SUNITINIB MALATE
     Indication: NEOPLASM MALIGNANT
     Route: 048
     Dates: start: 20180222, end: 20180416
  2. CABOMETYX [Suspect]
     Active Substance: CABOZANTINIB S-MALATE
     Indication: NEOPLASM MALIGNANT
     Route: 048
     Dates: start: 20180510
  3. FENTANYL. [Concomitant]
     Active Substance: FENTANYL

REACTIONS (7)
  - Constipation [None]
  - Hypotension [None]
  - Gastric disorder [None]
  - Oedema [None]
  - Pulmonary oedema [None]
  - Loss of consciousness [None]
  - Oedema peripheral [None]
